FAERS Safety Report 20346913 (Version 1)
Quarter: 2022Q1

REPORT INFORMATION
  Report Type: Spontaneous
  Country: GB (occurrence: GB)
  Receive Date: 20220118
  Receipt Date: 20220118
  Transmission Date: 20220423
  Serious: Yes (Disabling, Other)
  Sender: FDA-Public Use
  Company Number: None

PATIENT

DRUGS (11)
  1. ACETAMINOPHEN [Suspect]
     Active Substance: ACETAMINOPHEN
     Indication: Product used for unknown indication
     Dosage: 1-2
     Route: 065
     Dates: start: 20211202, end: 20211203
  2. AMISULPRIDE [Concomitant]
     Active Substance: AMISULPRIDE
     Dates: start: 20180914
  3. BECLOMETHASONE DIPROPIONATE [Concomitant]
     Active Substance: BECLOMETHASONE DIPROPIONATE
     Dates: start: 20211009
  4. CODEINE PHOSPHATE [Concomitant]
     Active Substance: CODEINE PHOSPHATE
     Dates: start: 20211202, end: 20211209
  5. BECLOMETHASONE\FORMOTEROL [Concomitant]
     Active Substance: BECLOMETHASONE\FORMOTEROL
     Dates: start: 20211203
  6. IBUPROFEN [Concomitant]
     Active Substance: IBUPROFEN
     Dates: start: 20211201, end: 20211201
  7. LURASIDONE [Concomitant]
     Active Substance: LURASIDONE
     Dosage: TAKE AT NIGHT
     Dates: start: 20190226
  8. METHYL SALICYLATE [Concomitant]
     Active Substance: METHYL SALICYLATE
     Dates: start: 20211203, end: 20211217
  9. PROCYCLIDINE [Concomitant]
     Active Substance: PROCYCLIDINE
     Dates: start: 20210303
  10. QUETIAPINE [Concomitant]
     Active Substance: QUETIAPINE
     Dates: start: 20211124
  11. ALBUTEROL [Concomitant]
     Active Substance: ALBUTEROL
     Dates: start: 20211126

REACTIONS (2)
  - Dyspnoea [Recovered/Resolved]
  - Pulmonary pain [Recovered/Resolved]

NARRATIVE: CASE EVENT DATE: 20211221
